FAERS Safety Report 9696736 (Version 2)
Quarter: 2013Q4

REPORT INFORMATION
  Report Type: Spontaneous
  Country: US (occurrence: US)
  Receive Date: 20131119
  Receipt Date: 20131119
  Transmission Date: 20140711
  Serious: No
  Sender: FDA-Public Use
  Company Number: US-GILEAD-2007-0014088

PATIENT
  Sex: Female
  Weight: 58.97 kg

DRUGS (10)
  1. LETAIRIS [Suspect]
     Indication: PULMONARY ARTERIAL HYPERTENSION
     Route: 048
  2. LASIX [Concomitant]
     Route: 048
  3. POTASSIUM CHLORIDE [Concomitant]
     Route: 048
  4. REVATIO [Concomitant]
     Route: 048
  5. COUMADIN [Concomitant]
     Route: 048
  6. LANOXIN [Concomitant]
     Route: 048
  7. SYNTHROID [Concomitant]
     Route: 048
  8. MULTIVITAMINS [Concomitant]
     Route: 048
  9. PREMARIN [Concomitant]
     Route: 048
  10. OXYGEN [Concomitant]
     Dosage: HS
     Route: 055

REACTIONS (1)
  - Hepatic enzyme increased [Unknown]
